FAERS Safety Report 14678254 (Version 7)
Quarter: 2018Q2

REPORT INFORMATION
  Report Type: Spontaneous
  Country: US (occurrence: US)
  Receive Date: 20180326
  Receipt Date: 20180517
  Transmission Date: 20180711
  Serious: Yes (Hospitalization, Other)
  Sender: FDA-Public Use
  Company Number: US-UNITED THERAPEUTICS-UNT-2018-003289

PATIENT
  Age: 58 Year
  Sex: Male
  Weight: 73.56 kg

DRUGS (8)
  1. REMODULIN [Suspect]
     Active Substance: TREPROSTINIL
     Dosage: 0.033 ?G/KG, CONTINUING
     Route: 041
  2. CHLORHEXIDINE GLUCONATE. [Suspect]
     Active Substance: CHLORHEXIDINE GLUCONATE
     Indication: PRODUCT USED FOR UNKNOWN INDICATION
     Route: 065
  3. ADCIRCA [Concomitant]
     Active Substance: TADALAFIL
     Indication: PRODUCT USED FOR UNKNOWN INDICATION
     Route: 065
  4. REMODULIN [Suspect]
     Active Substance: TREPROSTINIL
     Indication: PULMONARY ARTERIAL HYPERTENSION
     Dosage: 0.028 ?G/KG, CONTINUING
     Route: 041
     Dates: start: 20170727
  5. REMODULIN [Suspect]
     Active Substance: TREPROSTINIL
     Dosage: 0.036 ?G/KG, UNK
     Route: 041
     Dates: start: 20180326
  6. ELIQUIS [Concomitant]
     Active Substance: APIXABAN
     Indication: PRODUCT USED FOR UNKNOWN INDICATION
     Route: 065
  7. LETAIRIS [Concomitant]
     Active Substance: AMBRISENTAN
     Indication: PRODUCT USED FOR UNKNOWN INDICATION
     Route: 065
  8. REMODULIN [Suspect]
     Active Substance: TREPROSTINIL
     Dosage: 0.038 ?G/KG, CONTINUING
     Route: 041

REACTIONS (13)
  - Fluid retention [Unknown]
  - Pyrexia [Unknown]
  - Bone pain [Unknown]
  - Drug hypersensitivity [Unknown]
  - Device related infection [Unknown]
  - Feeling abnormal [Unknown]
  - Asthenia [Unknown]
  - Diarrhoea [Unknown]
  - Pain [Unknown]
  - Injection site pain [Unknown]
  - Blood iron decreased [Unknown]
  - Neck pain [Unknown]
  - Skin disorder [Unknown]

NARRATIVE: CASE EVENT DATE: 201803
